FAERS Safety Report 5071226-1 (Version None)
Quarter: 2006Q3

REPORT INFORMATION
  Report Type: 
  Country: None (occurrence: None)
  Receive Date: 20060803
  Receipt Date: 20060803
  Transmission Date: 20061208
  Serious: Yes (Hospitalization)
  Sender: FDA-Public Use
  Company Number: None

PATIENT
  Age: 62 Year
  Sex: Male
  Weight: 61 kg

DRUGS (1)
  1. ALLOPURINAL (STRENGTH AND MANUFACTURER NOT KNOWN) [Suspect]
     Indication: GOUT
     Dosage: ORAL
     Route: 048
     Dates: start: 20060710, end: 20060717

REACTIONS (5)
  - BLISTER [None]
  - BURNS SECOND DEGREE [None]
  - DERMATITIS ALLERGIC [None]
  - RASH ERYTHEMATOUS [None]
  - SELF-MEDICATION [None]
